FAERS Safety Report 10241640 (Version 4)
Quarter: 2014Q3

REPORT INFORMATION
  Report Type: Spontaneous
  Country: US (occurrence: None)
  Receive Date: 20140613
  Receipt Date: 20140709
  Transmission Date: 20150326
  Serious: Yes (Hospitalization)
  Sender: FDA-Public Use
  Company Number: UNT-2014-001273

PATIENT
  Age: 78 Year
  Sex: Male
  Weight: 122.9 kg

DRUGS (15)
  1. LEVAQUIN [Concomitant]
     Active Substance: LEVOFLOXACIN
  2. SINGULAIR (MONTELUKAST SODIUIM) [Concomitant]
  3. SOLU-MEDROL [Concomitant]
     Active Substance: METHYLPREDNISOLONE SODIUM SUCCINATE
  4. NEXIUM [Concomitant]
     Active Substance: ESOMEPRAZOLE MAGNESIUM
  5. TYVASO [Suspect]
     Active Substance: TREPROSTINIL
     Indication: PULMONARY ARTERIAL HYPERTENSION
     Route: 055
     Dates: start: 20140326
  6. FLOMAX [Concomitant]
     Active Substance: TAMSULOSIN HYDROCHLORIDE
  7. MUCINEX (GUAIFENESIN) [Concomitant]
  8. CLARITIN (GLICLAZIDE) [Concomitant]
     Active Substance: GLICLAZIDE
  9. FENOFIBRATE (FENOFIBRATE) [Concomitant]
  10. PROTONIX [Concomitant]
     Active Substance: PANTOPRAZOLE SODIUM
  11. ADEMPAS [Concomitant]
     Active Substance: RIOCIGUAT
     Indication: PULMONARY ARTERIAL HYPERTENSION
  12. LETAIRIS [Concomitant]
     Active Substance: AMBRISENTAN
  13. ZOCOR [Concomitant]
     Active Substance: SIMVASTATIN
  14. LANTUS [Concomitant]
     Active Substance: INSULIN GLARGINE
  15. NOVOLOG [Concomitant]
     Active Substance: INSULIN ASPART

REACTIONS (11)
  - Flank pain [None]
  - Oedema [None]
  - Rectal haemorrhage [None]
  - Haemoptysis [None]
  - Drug intolerance [None]
  - Pneumonia [None]
  - Pulmonary alveolar haemorrhage [None]
  - Fatigue [None]
  - Dyspnoea [None]
  - Pulmonary haemorrhage [None]
  - Acute respiratory failure [None]

NARRATIVE: CASE EVENT DATE: 201405
